FAERS Safety Report 7717608-8 (Version None)
Quarter: 2011Q3

REPORT INFORMATION
  Report Type: 
  Country: None (occurrence: None)
  Receive Date: 20110830
  Receipt Date: 20110818
  Transmission Date: 20111222
  Serious: Yes (Other)
  Sender: FDA-Public Use
  Company Number: US-SANOFI-AVENTIS-2011SA054323

PATIENT
  Age: 92 Year
  Sex: Male
  Weight: 62 kg

DRUGS (8)
  1. OMEPRAZOLE [Concomitant]
     Route: 065
  2. WARFARIN SODIUM [Concomitant]
     Route: 065
  3. DOFETILIDE [Concomitant]
     Route: 065
  4. FLUTICASONE PROPIONATE [Concomitant]
     Route: 065
  5. ATIVAN [Concomitant]
     Route: 065
  6. TAMSULOSIN HCL [Concomitant]
     Route: 065
  7. FUROSEMIDE [Suspect]
     Route: 042
  8. SIMAVASTATIN [Concomitant]
     Route: 065

REACTIONS (1)
  - RENAL IMPAIRMENT [None]
